FAERS Safety Report 15044767 (Version 1)
Quarter: 2018Q2

REPORT INFORMATION
  Report Type: Spontaneous
  Country: US (occurrence: US)
  Receive Date: 20180531
  Receipt Date: 20180531
  Transmission Date: 20180711
  Serious: No
  Sender: FDA-Public Use
  Company Number: None

PATIENT
  Age: 50 Year
  Sex: Female

DRUGS (1)
  1. ABACAVIR SULFATE-LAMIVUDINE TAB 600-300MG [Suspect]
     Active Substance: ABACAVIR SULFATE\LAMIVUDINE
     Dates: start: 20170310, end: 20170609

REACTIONS (4)
  - Malaise [None]
  - Infection [None]
  - Hypersomnia [None]
  - Treatment noncompliance [None]

NARRATIVE: CASE EVENT DATE: 20170607
